FAERS Safety Report 6337305-3 (Version None)
Quarter: 2009Q3

REPORT INFORMATION
  Report Type: 
  Country: None (occurrence: None)
  Receive Date: 20090828
  Receipt Date: 20090828
  Transmission Date: 20100115
  Serious: No
  Sender: FDA-Public Use
  Company Number: None

PATIENT
  Age: 81 Year
  Sex: Female
  Weight: 48.5349 kg

DRUGS (2)
  1. RECLAST [Suspect]
     Indication: OSTEOPOROSIS
     Dosage: 5 MG ONCE IV
     Route: 042
     Dates: start: 20081230, end: 20081230
  2. RECLAST [Suspect]
     Indication: SPINAL COMPRESSION FRACTURE
     Dosage: 5 MG ONCE IV
     Route: 042
     Dates: start: 20081230, end: 20081230

REACTIONS (2)
  - EAR PAIN [None]
  - GLOSSITIS [None]
